FAERS Safety Report 10442153 (Version 2)
Quarter: 2014Q4

REPORT INFORMATION
  Report Type: Spontaneous
  Country: US (occurrence: US)
  Receive Date: 20140909
  Receipt Date: 20141006
  Transmission Date: 20150528
  Serious: Yes (Other)
  Sender: FDA-Public Use
  Company Number: US-BRISTOL-MYERS SQUIBB COMPANY-21348651

PATIENT
  Age: 65 Year
  Sex: Male

DRUGS (7)
  1. GLIMEPIRIDE. [Concomitant]
     Active Substance: GLIMEPIRIDE
  2. LASIX [Concomitant]
     Active Substance: FUROSEMIDE
  3. KOMBIGLYZE XR [Suspect]
     Active Substance: METFORMIN HYDROCHLORIDE\SAXAGLIPTIN HYDROCHLORIDE
     Indication: DIABETES MELLITUS
     Dosage: 1 DF = 2.5/1000 UNITS NOS.?TABS
     Route: 048
     Dates: start: 20130808, end: 20140627
  4. LIPITOR [Concomitant]
     Active Substance: ATORVASTATIN CALCIUM
  5. CARVEDILOL. [Concomitant]
     Active Substance: CARVEDILOL
  6. PLAVIX [Concomitant]
     Active Substance: CLOPIDOGREL BISULFATE
  7. HUMULIN 70/30 [Concomitant]
     Active Substance: INSULIN HUMAN

REACTIONS (2)
  - Pancreatitis [Recovering/Resolving]
  - Blood triglycerides increased [Recovering/Resolving]

NARRATIVE: CASE EVENT DATE: 20140625
